FAERS Safety Report 12114000 (Version 1)
Quarter: 2016Q1

REPORT INFORMATION
  Report Type: Spontaneous
  Country: US (occurrence: None)
  Receive Date: 20160224
  Receipt Date: 20160224
  Transmission Date: 20160526
  Serious: Yes (Disabling)
  Sender: FDA-Public Use
  Company Number: None

PATIENT
  Age: 59 Year
  Sex: Female
  Weight: 63.5 kg

DRUGS (3)
  1. CIPROFLOXACIN 500 MG UNKOWN: GIANT PHARMACY [Suspect]
     Active Substance: CIPROFLOXACIN
     Indication: DRUG HYPERSENSITIVITY
     Route: 048
     Dates: start: 20150211, end: 20160216
  2. CIPROFLOXACIN 500 MG UNKOWN: GIANT PHARMACY [Suspect]
     Active Substance: CIPROFLOXACIN
     Indication: INFECTION PROPHYLAXIS
     Route: 048
     Dates: start: 20150211, end: 20160216
  3. CIPROFLOXACIN 500 MG UNKOWN: GIANT PHARMACY [Suspect]
     Active Substance: CIPROFLOXACIN
     Indication: BITE
     Route: 048
     Dates: start: 20150211, end: 20160216

REACTIONS (1)
  - Tendon pain [None]

NARRATIVE: CASE EVENT DATE: 20150211
